FAERS Safety Report 24280027 (Version 2)
Quarter: 2024Q3

REPORT INFORMATION
  Report Type: Spontaneous
  Country: US (occurrence: US)
  Receive Date: 20240904
  Receipt Date: 20240918
  Transmission Date: 20241016
  Serious: Yes (Other)
  Sender: SPECGX
  Company Number: US-SPECGX-T202401763

PATIENT
  Sex: Female
  Weight: 70 kg

DRUGS (16)
  1. RESTORIL [Suspect]
     Active Substance: TEMAZEPAM
     Indication: Insomnia
     Dosage: UNK (A LESSER DOSE, PROBABLY 10MG)
     Route: 065
     Dates: start: 2003
  2. RESTORIL [Suspect]
     Active Substance: TEMAZEPAM
     Indication: Insomnia
     Dosage: 22.5 MILLIGRAM, QD
     Route: 065
  3. RESTORIL [Suspect]
     Active Substance: TEMAZEPAM
     Dosage: 22.5 MILLIGRAM, QD
     Route: 065
     Dates: start: 202407
  4. GLYCINE [Concomitant]
     Active Substance: GLYCINE
     Indication: Insomnia
     Dosage: UNK (IN NIGHT)
     Route: 065
  5. MELATONIN [Concomitant]
     Active Substance: MELATONIN
     Indication: Insomnia
     Dosage: 10 MILLIGRAM, QHS
     Route: 065
     Dates: start: 2023
  6. LISINOPRIL [Concomitant]
     Active Substance: LISINOPRIL
     Indication: Blood pressure abnormal
     Dosage: 20 MILLIGRAM, QD (IN MORNING)
     Route: 065
  7. VITAMIN B12 [Concomitant]
     Active Substance: CYANOCOBALAMIN
     Indication: Product used for unknown indication
     Dosage: 1000 MICROGRAM, QD (IN MORNING)
     Route: 065
  8. VITAMIN D3 [Concomitant]
     Active Substance: CHOLECALCIFEROL
     Indication: Product used for unknown indication
     Dosage: UNK (IN MORNING AND EVENING)
     Route: 065
  9. RETINOL [Concomitant]
     Active Substance: RETINOL
     Indication: Product used for unknown indication
     Dosage: UNK (5000 IU, IN MORNING)
     Route: 065
  10. HERBALS\MINERALS\VITAMINS [Concomitant]
     Active Substance: HERBALS\MINERALS\VITAMINS
     Indication: Product used for unknown indication
     Dosage: UNK (IN NOON)
     Route: 065
  11. MAGNESIUM OXIDE [Concomitant]
     Active Substance: MAGNESIUM OXIDE
     Indication: Product used for unknown indication
     Dosage: 400 MILLIGRAM, QD (IN NOON)
     Route: 065
  12. CALCIUM [Concomitant]
     Active Substance: CALCIUM
     Indication: Product used for unknown indication
     Dosage: 600 MILLIGRAM, QD (IN EVENING)
     Route: 065
  13. FISH OIL [Concomitant]
     Active Substance: FISH OIL
     Indication: Product used for unknown indication
     Dosage: 1000 MILLIGRAM, QD (IN EVENING)
     Route: 065
  14. LORATADINE [Concomitant]
     Active Substance: LORATADINE
     Indication: Product used for unknown indication
     Dosage: 10 MILLIGRAM, QD (IN EVENING)
     Route: 065
  15. ASPIRIN [Concomitant]
     Active Substance: ASPIRIN
     Indication: Prophylaxis
     Dosage: 82 MILLIGRAM, QHS
     Route: 065
  16. COQ10 [ASCORBIC ACID;BETACAROTENE;CUPRIC OXIDE;MANGANESE SULFATE;SELEN [Concomitant]
     Indication: Product used for unknown indication
     Dosage: 100 MILLIGRAM, QD (IN NOON)
     Route: 065

REACTIONS (13)
  - Hernia repair [Unknown]
  - Cardiac ablation [Unknown]
  - Intestinal resection [Unknown]
  - Cholecystectomy [Unknown]
  - Appendicectomy [Unknown]
  - Spinal deformity [Unknown]
  - Rotator cuff syndrome [Unknown]
  - Osteoarthritis [Not Recovered/Not Resolved]
  - Arthritis [Not Recovered/Not Resolved]
  - Somnolence [Unknown]
  - Suspected product quality issue [Unknown]
  - Product physical issue [Unknown]
  - Drug ineffective [Unknown]

NARRATIVE: CASE EVENT DATE: 20080101
